FAERS Safety Report 20509449 (Version 1)
Quarter: 2022Q1

REPORT INFORMATION
  Report Type: Spontaneous
  Country: US (occurrence: US)
  Receive Date: 20220224
  Receipt Date: 20220224
  Transmission Date: 20220423
  Serious: Yes (Hospitalization)
  Sender: FDA-Public Use
  Company Number: US-JNJFOC-20220242756

PATIENT
  Age: 74 Year
  Sex: Female

DRUGS (1)
  1. TYLENOL 8 HR ARTHRITIS PAIN [Suspect]
     Active Substance: ACETAMINOPHEN
     Indication: Product used for unknown indication
     Dosage: INGESTION ESTIMATE UNKNOWN
     Route: 048
     Dates: start: 20220212

REACTIONS (9)
  - Suspected suicide [Unknown]
  - Coagulopathy [Unknown]
  - Hypotension [Unknown]
  - Depressed level of consciousness [Unknown]
  - Electrocardiogram QRS complex abnormal [Unknown]
  - Electrocardiogram QT prolonged [Unknown]
  - Blood creatinine increased [Unknown]
  - Transaminases increased [Unknown]
  - Intentional overdose [Unknown]

NARRATIVE: CASE EVENT DATE: 20220212
